FAERS Safety Report 6749354-1 (Version None)
Quarter: 2010Q2

REPORT INFORMATION
  Report Type: 
  Country: None (occurrence: None)
  Receive Date: 20100601
  Receipt Date: 20100526
  Transmission Date: 20101027
  Serious: Yes (Death)
  Sender: FDA-Public Use
  Company Number: DE-ROCHE-701598

PATIENT
  Age: 73 Year
  Sex: Female

DRUGS (4)
  1. BEVACIZUMAB [Suspect]
     Route: 042
     Dates: start: 20100419
  2. IRINOTECAN HCL [Suspect]
     Route: 042
     Dates: start: 20100420
  3. FLUOROURACIL [Suspect]
     Dosage: 632 MG EVERY 2 WEEKS IV BOLUS.
     Route: 042
     Dates: start: 20100420
  4. FOLINIC ACID [Suspect]
     Route: 042
     Dates: start: 20100420

REACTIONS (1)
  - DEATH [None]
